FAERS Safety Report 11667802 (Version 2)
Quarter: 2015Q4

REPORT INFORMATION
  Report Type: Report from Study
  Country: US (occurrence: US)
  Receive Date: 20151027
  Receipt Date: 20151110
  Transmission Date: 20160304
  Serious: Yes (Hospitalization)
  Sender: FDA-Public Use
  Company Number: US-BAYER-2015-450577

PATIENT
  Age: 58 Year
  Sex: Male
  Weight: 69.4 kg

DRUGS (8)
  1. NEXAVAR [Suspect]
     Active Substance: SORAFENIB
     Indication: RENAL CELL CARCINOMA
     Dosage: 400 MG, BID
     Route: 048
     Dates: start: 20151008, end: 20151020
  2. MORPHINE [Concomitant]
     Active Substance: MORPHINE
     Dosage: 15 MG, BID
     Route: 048
  3. RADIUM-223 DICHLORIDE [Suspect]
     Active Substance: RADIUM RA-223 DICHLORIDE
     Indication: RENAL CELL CARCINOMA
     Dosage: 50 KBQ / KG EVERY 4 WEEKS
     Route: 042
     Dates: start: 20151008
  4. COLACE [Concomitant]
     Active Substance: DOCUSATE SODIUM
     Dosage: 10 MG, QD
     Route: 048
  5. ATIVAN [Concomitant]
     Active Substance: LORAZEPAM
     Dosage: 0.5 MG, PRN
     Route: 048
  6. LIPITOR [Concomitant]
     Active Substance: ATORVASTATIN CALCIUM
     Dosage: 10 MG, QD
     Route: 048
  7. APIXABAN [Concomitant]
     Active Substance: APIXABAN
     Dosage: 2.5 MG, BID
     Route: 048
  8. LEVOTHYROXINE. [Concomitant]
     Active Substance: LEVOTHYROXINE
     Dosage: 50 ?G, QD

REACTIONS (4)
  - Anaemia [Recovering/Resolving]
  - Blood creatinine increased [Recovered/Resolved]
  - Hyponatraemia [Not Recovered/Not Resolved]
  - Fatigue [Recovering/Resolving]

NARRATIVE: CASE EVENT DATE: 20151020
